FAERS Safety Report 4663858-7 (Version None)
Quarter: 2005Q2

REPORT INFORMATION
  Report Type: 
  Country: None (occurrence: None)
  Receive Date: 20050516
  Receipt Date: 20050428
  Transmission Date: 20051028
  Serious: Yes (Hospitalization)
  Sender: FDA-Public Use
  Company Number: DSA_26392_2005

PATIENT
  Age: 82 Year
  Sex: Male

DRUGS (5)
  1. MASDIL [Suspect]
     Indication: MYOCARDIAL ISCHAEMIA
     Dosage: 240 MG Q DAY PO
     Route: 048
     Dates: start: 20020701, end: 20020927
  2. CRINOREN [Concomitant]
  3. TRINIPATCH [Concomitant]
  4. BELMAZOL [Concomitant]
  5. ROHIPNOL [Concomitant]

REACTIONS (3)
  - ATRIAL FIBRILLATION [None]
  - HEART RATE DECREASED [None]
  - HEART RATE IRREGULAR [None]
